FAERS Safety Report 9721536 (Version 2)
Quarter: 2013Q4

REPORT INFORMATION
  Report Type: Other
  Country: JP (occurrence: JP)
  Receive Date: 20131130
  Receipt Date: 20131212
  Transmission Date: 20140711
  Serious: No
  Sender: FDA-Public Use
  Company Number: JP-BRISTOL-MYERS SQUIBB COMPANY-19862523

PATIENT
  Sex: 0

DRUGS (2)
  1. ABILIFY [Suspect]
     Route: 048
  2. ESCITALOPRAM OXALATE [Interacting]
     Route: 048

REACTIONS (2)
  - Drug level increased [Unknown]
  - Drug interaction [Unknown]
